FAERS Safety Report 7215251-0 (Version None)
Quarter: 2011Q1

REPORT INFORMATION
  Report Type: 
  Country: None (occurrence: None)
  Receive Date: 20110107
  Receipt Date: 20101229
  Transmission Date: 20110831
  Serious: Yes (Other)
  Sender: FDA-Public Use
  Company Number: PHHY2010BR89106

PATIENT
  Sex: Male

DRUGS (2)
  1. GALVUS MET COMBIPACK [Suspect]
     Dosage: FIXED COMBINATION TABLETS (50/1000 MG)
  2. DIOVAN AMLO [Suspect]
     Dosage: COMBIPACK TABLET (80/5 MG)

REACTIONS (2)
  - SURGERY [None]
  - INFARCTION [None]
